FAERS Safety Report 21494432 (Version 3)
Quarter: 2023Q1

REPORT INFORMATION
  Report Type: Report from Study
  Country: US (occurrence: US)
  Receive Date: 20221021
  Receipt Date: 20230115
  Transmission Date: 20230417
  Serious: Yes (Hospitalization)
  Sender: FDA-Public Use
  Company Number: US-ABBVIE-4169925

PATIENT
  Sex: Female
  Weight: 58 kg

DRUGS (4)
  1. VENCLEXTA [Suspect]
     Active Substance: VENETOCLAX
     Indication: Myeloid leukaemia
     Dosage: FORM STRENGTH: 100 MILLIGRAM?FREQUENCY TEXT: THEN TAKE 200MG BY MOUTH ON DAY 2
     Route: 048
     Dates: start: 20220926
  2. VENCLEXTA [Suspect]
     Active Substance: VENETOCLAX
     Indication: Myeloid leukaemia
     Dosage: TAKE FOR 21 DAYS ON THEN 7 DAYS OFF THEN REPEAT AS DIRECTED;?FORM STRENGTH: 100 MILLIGRAM
     Route: 048
  3. VENCLEXTA [Suspect]
     Active Substance: VENETOCLAX
     Indication: Myeloid leukaemia
     Dosage: FORM STRENGTH: 100 MILLIGRAM
     Route: 048
  4. VENCLEXTA [Suspect]
     Active Substance: VENETOCLAX
     Indication: Myeloid leukaemia
     Dosage: FORM STRENGTH: 100 MILLIGRAM?FREQUENCY TEXT: TAKE 400MG BY MOUTH DAILY THEREAFTER
     Route: 048

REACTIONS (3)
  - Hospitalisation [Unknown]
  - Off label use [Unknown]
  - Platelet disorder [Unknown]
